FAERS Safety Report 6108341-7 (Version None)
Quarter: 2009Q1

REPORT INFORMATION
  Report Type: 
  Country: None (occurrence: None)
  Receive Date: 20090309
  Receipt Date: 20090227
  Transmission Date: 20090719
  Serious: Yes (Hospitalization)
  Sender: FDA-Public Use
  Company Number: FR-ASTRAZENECA-2009CG00358

PATIENT
  Age: 702 Month
  Sex: Male
  Weight: 77 kg

DRUGS (3)
  1. CRESTOR [Suspect]
     Indication: HYPERCHOLESTEROLAEMIA
     Route: 048
     Dates: start: 20080501, end: 20081207
  2. TEMERIT [Concomitant]
     Indication: HYPERTENSION
     Route: 048
     Dates: start: 20050101
  3. ALDACTAZINE [Concomitant]
     Indication: HYPERTENSION
     Route: 048

REACTIONS (7)
  - ARTHRALGIA [None]
  - BRONCHITIS [None]
  - DYSPNOEA EXERTIONAL [None]
  - MUSCULAR WEAKNESS [None]
  - MYALGIA [None]
  - PAIN IN EXTREMITY [None]
  - WEIGHT INCREASED [None]
